FAERS Safety Report 7396609-6 (Version None)
Quarter: 2011Q2

REPORT INFORMATION
  Report Type: 
  Country: None (occurrence: None)
  Receive Date: 20110406
  Receipt Date: 20110322
  Transmission Date: 20111010
  Serious: Yes (Hospitalization, Other)
  Sender: FDA-Public Use
  Company Number: PHHY2011JP24401

PATIENT
  Age: 66 Year
  Sex: Female

DRUGS (2)
  1. HERCEPTIN [Suspect]
     Indication: ADJUVANT THERAPY
     Dosage: 6 MG/KG, EVERY THREE WEEKS
     Route: 041
  2. FEMARA [Suspect]
     Indication: BREAST CANCER
     Dosage: 2.5 MG, DAILY
     Route: 048

REACTIONS (3)
  - CHEST X-RAY ABNORMAL [None]
  - HYPERSENSITIVITY [None]
  - PNEUMONIA [None]
